FAERS Safety Report 4708852-2 (Version None)
Quarter: 2005Q3

REPORT INFORMATION
  Report Type: 
  Country: None (occurrence: None)
  Receive Date: 20050705
  Receipt Date: 20050620
  Transmission Date: 20060218
  Serious: Yes (Death, Hospitalization, Other)
  Sender: FDA-Public Use
  Company Number: 2005FR-00047

PATIENT
  Age: 90 Year
  Sex: Female
  Weight: 57 kg

DRUGS (4)
  1. ASPIRIN [Suspect]
     Indication: ANGINA PECTORIS
     Dosage: 75MG, ONCE DAILY, ORAL
     Route: 048
     Dates: end: 20050531
  2. CELEBREX [Concomitant]
  3. ISOSORBIDE DINITRATE [Concomitant]
  4. STILNOCT [Concomitant]

REACTIONS (3)
  - FAECES DISCOLOURED [None]
  - GASTRITIS [None]
  - RECTAL HAEMORRHAGE [None]
